FAERS Safety Report 9083598 (Version 1)
Quarter: 2013Q1

REPORT INFORMATION
  Report Type: Report from Study
  Country: US (occurrence: US)
  Receive Date: 20130130
  Receipt Date: 20130130
  Transmission Date: 20140127
  Serious: No
  Sender: FDA-Public Use
  Company Number: US-ABBOTT-12P-163-0954194-00

PATIENT
  Age: 45 Year
  Sex: Female

DRUGS (13)
  1. HUMIRA 40 MG/ 0.8 ML PRE-FILLED SYRINGE [Suspect]
     Indication: CROHN^S DISEASE
     Dosage: DAY 1 ONLY
     Route: 058
     Dates: start: 20120517, end: 20120517
  2. XANAX [Concomitant]
     Indication: ANXIETY
  3. PHENERGAN [Concomitant]
     Indication: NAUSEA
  4. MORPHINE [Concomitant]
     Indication: ABDOMINAL PAIN
     Dosage: IMMEDIATE RELEASE
  5. MORPHINE [Concomitant]
     Dosage: IMMEDIATE RELEASE
  6. NORCO [Concomitant]
     Indication: ABDOMINAL PAIN
  7. LOMOTIL [Concomitant]
     Indication: DIARRHOEA
  8. PENTASA [Concomitant]
     Indication: CROHN^S DISEASE
     Dosage: 1000
  9. BENTYL [Concomitant]
     Indication: ABDOMINAL PAIN UPPER
  10. ESTROGEN [Concomitant]
     Indication: PRODUCT USED FOR UNKNOWN INDICATION
     Dosage: DAILY
  11. LAMICTAL [Concomitant]
     Indication: AFFECTIVE DISORDER
  12. CELEXA [Concomitant]
     Indication: DEPRESSION
     Dosage: 20MG DAILY
  13. PRILOSEC [Concomitant]
     Indication: GASTROOESOPHAGEAL REFLUX DISEASE
     Dosage: DAILY

REACTIONS (4)
  - Heart rate increased [Recovering/Resolving]
  - Rash [Recovering/Resolving]
  - Rash [Recovering/Resolving]
  - Rash [Recovering/Resolving]
